FAERS Safety Report 4602851-7 (Version None)
Quarter: 2005Q1

REPORT INFORMATION
  Report Type: 
  Country: None (occurrence: None)
  Receive Date: 20050309
  Receipt Date: 20030623
  Transmission Date: 20050727
  Serious: Yes (Hospitalization)
  Sender: FDA-Public Use
  Company Number: US-GLAXOSMITHKLINE-A0413960A

PATIENT
  Sex: Female
  Weight: 53.6 kg

DRUGS (9)
  1. AVANDIA [Suspect]
     Indication: DIABETES MELLITUS
     Dosage: 4MG PER DAY
     Route: 048
     Dates: end: 20021001
  2. GLIPIZIDE [Concomitant]
     Indication: DIABETES MELLITUS
     Dosage: 10MG PER DAY
  3. LOTENSIN [Concomitant]
     Indication: HYPERTENSION
     Dosage: 10MG PER DAY
  4. GLUCOPHAGE [Concomitant]
     Indication: DIABETES MELLITUS
  5. FOLIC ACID [Concomitant]
  6. ALTACE [Concomitant]
  7. ZYRTEC [Concomitant]
  8. PHENERGAN EXPECTORANT W/ CODEINE [Concomitant]
  9. COZAAR [Concomitant]

REACTIONS (24)
  - ABDOMINAL PAIN [None]
  - ASTHMA [None]
  - CHOLELITHIASIS [None]
  - COUGH [None]
  - DYSPNOEA [None]
  - GALLBLADDER DISORDER [None]
  - GASTRODUODENITIS [None]
  - GRAVITATIONAL OEDEMA [None]
  - HAEMORRHAGE [None]
  - HELICOBACTER INFECTION [None]
  - HEPATIC CIRRHOSIS [None]
  - HEPATIC NEOPLASM [None]
  - HEPATITIS [None]
  - HEPATITIS A ANTIBODY POSITIVE [None]
  - HEPATOSPLENOMEGALY [None]
  - NAUSEA [None]
  - NEPHROLITHIASIS [None]
  - PALPITATIONS [None]
  - PORTAL HYPERTENSION [None]
  - PROCEDURAL HYPOTENSION [None]
  - PYELONEPHRITIS [None]
  - SINUS TACHYCARDIA [None]
  - SPLEEN DISORDER [None]
  - VARICOSE VEIN [None]
